FAERS Safety Report 23214157 (Version 1)
Quarter: 2023Q4

REPORT INFORMATION
  Report Type: Spontaneous
  Country: US (occurrence: US)
  Receive Date: 20231121
  Receipt Date: 20231121
  Transmission Date: 20240109
  Serious: No
  Sender: FDA-Public Use
  Company Number: US-PFIZER INC-PV202300172386

PATIENT
  Age: 73 Year
  Sex: Female

DRUGS (1)
  1. BRAFTOVI [Suspect]
     Active Substance: ENCORAFENIB
     Dosage: 5 DAILY TAKE WITH OR WITHOUT FOOD. AVOID GRAPEFRUIT.

REACTIONS (2)
  - Vision blurred [Unknown]
  - Off label use [Unknown]
